FAERS Safety Report 8391526-7 (Version None)
Quarter: 2012Q1

REPORT INFORMATION
  Report Type: 
  Country: None (occurrence: None)
  Receive Date: 20120323
  Receipt Date: 20110516
  Transmission Date: 20120608
  Serious: Yes (Other)
  Sender: FDA-Public Use
  Company Number: 163-21880-11042086

PATIENT
  Age: 78 Year
  Sex: Female
  Weight: 66.68 kg

DRUGS (3)
  1. REVLIMID [Suspect]
     Indication: MULTIPLE MYELOMA
     Dosage: 25 MG, DAILY DAYS 1-21 Q 28 DAYS, PO
     Route: 048
     Dates: start: 20110101
  2. COUMADIN [Concomitant]
  3. DECADRON [Concomitant]

REACTIONS (3)
  - OROPHARYNGEAL PAIN [None]
  - RESPIRATORY TRACT INFECTION VIRAL [None]
  - UPPER RESPIRATORY TRACT CONGESTION [None]
